FAERS Safety Report 24610726 (Version 2)
Quarter: 2025Q4

REPORT INFORMATION
  Report Type: Spontaneous
  Country: US (occurrence: US)
  Receive Date: 20241112
  Receipt Date: 20251008
  Transmission Date: 20260119
  Serious: Yes (Other)
  Sender: SANDOZ
  Company Number: US-MLMSERVICE-20241030-PI244234-00128-1

PATIENT
  Age: 49 Year
  Sex: Female

DRUGS (9)
  1. CYCLOPHOSPHAMIDE [Suspect]
     Active Substance: CYCLOPHOSPHAMIDE
     Indication: Diffuse large B-cell lymphoma
     Dosage: UNK
     Route: 065
  2. DOXORUBICIN HYDROCHLORIDE [Suspect]
     Active Substance: DOXORUBICIN HYDROCHLORIDE
     Indication: Diffuse large B-cell lymphoma
     Dosage: UNK
     Route: 065
  3. PREDNISONE [Suspect]
     Active Substance: PREDNISONE
     Indication: Diffuse large B-cell lymphoma
     Dosage: UNK
     Route: 065
  4. RITUXIMAB [Suspect]
     Active Substance: RITUXIMAB
     Indication: Diffuse large B-cell lymphoma
     Dosage: UNK
     Route: 065
  5. VINCRISTINE [Suspect]
     Active Substance: VINCRISTINE
     Indication: Diffuse large B-cell lymphoma
     Dosage: UNK
     Route: 065
  6. ICATIBANT [Concomitant]
     Active Substance: ICATIBANT ACETATE
     Indication: Hereditary angioedema with C1 esterase inhibitor deficiency
     Route: 065
  7. ICATIBANT [Concomitant]
     Active Substance: ICATIBANT ACETATE
     Route: 065
  8. LANADELUMAB [Concomitant]
     Active Substance: LANADELUMAB
     Indication: Hereditary angioedema with C1 esterase inhibitor deficiency
     Dosage: EVERY 2 WEEK
     Route: 065
  9. LANADELUMAB [Concomitant]
     Active Substance: LANADELUMAB
     Dosage: EVERY 2 WEEK
     Route: 065

REACTIONS (2)
  - Hereditary angioedema with C1 esterase inhibitor deficiency [Recovered/Resolved]
  - Condition aggravated [Recovered/Resolved]
